FAERS Safety Report 5528560-8 (Version None)
Quarter: 2007Q4

REPORT INFORMATION
  Report Type: 
  Country: None (occurrence: None)
  Receive Date: 20071123
  Receipt Date: 20071107
  Transmission Date: 20080405
  Serious: Yes (Other)
  Sender: FDA-Public Use
  Company Number: 100#03#2007-04671

PATIENT
  Age: 14 Year
  Sex: Female

DRUGS (3)
  1. SERTRALINE [Suspect]
     Indication: OBSESSIVE-COMPULSIVE DISORDER
     Dosage: 25-50 MG ORAL
     Route: 048
     Dates: start: 20070913, end: 20071009
  2. PROPRANOLOL [Concomitant]
  3. RISPERIDONE [Concomitant]

REACTIONS (7)
  - ABDOMINAL PAIN [None]
  - LOSS OF CONSCIOUSNESS [None]
  - NAUSEA [None]
  - ORTHOSTATIC HYPOTENSION [None]
  - SEDATION [None]
  - SYNCOPE [None]
  - TREMOR [None]
